FAERS Safety Report 8598612-7 (Version None)
Quarter: 2012Q3

REPORT INFORMATION
  Report Type: 
  Country: None (occurrence: None)
  Receive Date: 20120803
  Receipt Date: 20120723
  Transmission Date: 20120928
  Serious: Yes (Other)
  Sender: FDA-Public Use
  Company Number: AUR-APL-2012-03080

PATIENT
  Age: 32 Year
  Sex: Male

DRUGS (3)
  1. INDINIVIR SULFATE [Suspect]
     Indication: ANTIRETROVIRAL THERAPY
  2. VENLAFAXINE HCL [Suspect]
     Indication: MAJOR DEPRESSION
     Dosage: 150 MG (150 MG,  1 IN 1 D)
  3. LAMIVUDINE AND ZIDOVUDINE (ZIDOVUDINE W/LAMIVUDINE) [Concomitant]

REACTIONS (6)
  - LETHARGY [None]
  - MAJOR DEPRESSION [None]
  - VIROLOGIC FAILURE [None]
  - DRUG INTERACTION [None]
  - DRUG LEVEL DECREASED [None]
  - BLOOD HIV RNA INCREASED [None]
